FAERS Safety Report 6287964-9 (Version None)
Quarter: 2009Q3

REPORT INFORMATION
  Report Type: 
  Country: None (occurrence: None)
  Receive Date: 20090729
  Receipt Date: 20070629
  Transmission Date: 20100115
  Serious: Yes (Other)
  Sender: FDA-Public Use
  Company Number: US-ASTRAZENECA-2006UW26148

PATIENT
  Age: 28312 Day
  Sex: Female
  Weight: 90.7 kg

DRUGS (26)
  1. SEROQUEL [Suspect]
     Indication: DEPRESSION
     Dosage: 25-100 MG
     Route: 048
     Dates: start: 20050114
  2. ACTOS [Concomitant]
     Indication: BLOOD GLUCOSE ABNORMAL
     Dates: start: 20050114
  3. ALTACE [Concomitant]
     Indication: BLOOD PRESSURE
     Dates: start: 20050114
  4. ZOLOFT [Concomitant]
     Indication: BIPOLAR I DISORDER
     Route: 048
     Dates: start: 20050114
  5. VITAMIN E [Concomitant]
     Indication: COGNITIVE DISORDER
     Dosage: 400 UNITS
     Dates: start: 20050114
  6. LIPITOR [Concomitant]
     Route: 048
     Dates: start: 20050613
  7. GLUCOTROL XL [Concomitant]
     Indication: DEPRESSION
     Dosage: 20-40 MG
     Route: 048
     Dates: start: 19910612
  8. GLUCOTROL XL [Concomitant]
     Indication: TYPE 2 DIABETES MELLITUS
     Dosage: 20-40 MG
     Route: 048
     Dates: start: 19910612
  9. GLUCOTROL XL [Concomitant]
     Indication: BLOOD GLUCOSE ABNORMAL
     Dosage: 20-40 MG
     Route: 048
     Dates: start: 19910612
  10. ACCUPRIL [Concomitant]
     Indication: RENAL FAILURE
     Dates: start: 20010117
  11. PREDNISONE [Concomitant]
     Indication: SINUSITIS
     Dates: start: 20070514
  12. CEFTIN [Concomitant]
     Indication: SINUSITIS
     Dates: start: 20070514
  13. AMBIEN [Concomitant]
     Indication: INSOMNIA
     Dosage: 10 MG,QHS, PRN
     Route: 048
     Dates: start: 20060714
  14. ATORVASTATIN CALCIUM [Concomitant]
     Indication: HYPERLIPIDAEMIA
     Dates: start: 20061226
  15. CAPOTEN [Concomitant]
     Indication: CARDIAC FAILURE CONGESTIVE
     Dosage: 12.5 MG, ONE-HALF BY MOUTH EVERY MORNING
     Dates: start: 20060609
  16. CLONAZEPAM [Concomitant]
     Route: 048
     Dates: start: 20070309
  17. COREG [Concomitant]
     Indication: CARDIAC FAILURE CONGESTIVE
     Route: 048
     Dates: start: 20060405
  18. EFFEXOR XR [Concomitant]
     Indication: DEPRESSION
     Route: 048
     Dates: start: 20060714
  19. FLUTICASONE PROPIONATE NASAL [Concomitant]
     Indication: RHINITIS SEASONAL
     Dosage: 50 MCG, 2 SPRAY, EACH  NOSTRIL Q DAY
     Route: 045
     Dates: start: 20070322
  20. IBUPROFEN [Concomitant]
     Indication: BACK PAIN
     Dosage: 1 TABLET,3 TIMES/DAY PRN
     Route: 048
     Dates: start: 20070514
  21. LANTUS [Concomitant]
     Indication: DIABETES MELLITUS INADEQUATE CONTROL
     Dosage: 30 U Q PRN
     Dates: start: 20070202
  22. LASIX [Concomitant]
     Indication: CARDIAC FAILURE CONGESTIVE
     Route: 048
     Dates: start: 20010117
  23. LORAZEPAM [Concomitant]
     Indication: ANXIETY
     Dosage: 0.5 MG,ONE PRN
     Dates: start: 20070309
  24. METFORMIN [Concomitant]
     Indication: TYPE 2 DIABETES MELLITUS
     Route: 048
     Dates: start: 20070326
  25. POTASSIUM CHLORIDE [Concomitant]
     Indication: HYPOKALAEMIA
     Route: 048
     Dates: start: 20070514
  26. ZYRTEC [Concomitant]
     Indication: RHINITIS SEASONAL
     Route: 048
     Dates: start: 20070124

REACTIONS (3)
  - DIABETES MELLITUS [None]
  - DIABETES MELLITUS INADEQUATE CONTROL [None]
  - DIABETIC NEUROPATHY [None]
